FAERS Safety Report 8357480-9 (Version None)
Quarter: 2012Q2

REPORT INFORMATION
  Report Type: 
  Country: None (occurrence: None)
  Receive Date: 20120514
  Receipt Date: 20120507
  Transmission Date: 20120825
  Serious: Yes (Other)
  Sender: FDA-Public Use
  Company Number: JP-VERTEX PHARMACEUTICALS INC.-AE-2012-004098

PATIENT
  Age: 56 Year
  Sex: Male

DRUGS (9)
  1. TELAVIC (TELAPREVIR) [Suspect]
     Indication: HEPATITIS C
     Route: 048
     Dates: start: 20120314, end: 20120316
  2. TELAVIC (TELAPREVIR) [Suspect]
     Route: 048
     Dates: start: 20120323
  3. TELAVIC (TELAPREVIR) [Suspect]
     Route: 048
     Dates: start: 20120321, end: 20120322
  4. PEGINTERFERON ALFA-2B [Concomitant]
     Route: 051
     Dates: start: 20120314
  5. COPEGUS [Concomitant]
     Indication: HEPATITIS C
     Route: 048
     Dates: start: 20080513, end: 20090421
  6. REBETOL [Concomitant]
     Route: 048
     Dates: start: 20120404
  7. PEGINTERFERON ALFA-2B [Concomitant]
     Indication: HEPATITIS C
     Route: 051
     Dates: start: 20080513, end: 20090414
  8. REBETOL [Concomitant]
     Route: 048
     Dates: start: 20120314, end: 20120403
  9. URSO 250 [Concomitant]
     Route: 048
     Dates: start: 20100330, end: 20120313

REACTIONS (1)
  - ERYTHEMA [None]
